FAERS Safety Report 14562112 (Version 1)
Quarter: 2018Q1

REPORT INFORMATION
  Report Type: Spontaneous
  Country: US (occurrence: US)
  Receive Date: 20180222
  Receipt Date: 20180222
  Transmission Date: 20180509
  Serious: No
  Sender: FDA-Public Use
  Company Number: US-BAUSCH-BL-2017-011392

PATIENT
  Sex: Male

DRUGS (5)
  1. TARGRETIN [Suspect]
     Active Substance: BEXAROTENE
     Indication: MYCOSIS FUNGOIDES
     Route: 048
     Dates: start: 201411, end: 201507
  2. METHOTREXATE. [Concomitant]
     Active Substance: METHOTREXATE
     Indication: PRODUCT USED FOR UNKNOWN INDICATION
     Route: 048
     Dates: start: 201608
  3. MONTELUKAST [Concomitant]
     Active Substance: MONTELUKAST SODIUM
     Indication: ASTHMA
  4. TARGRETIN [Suspect]
     Active Substance: BEXAROTENE
     Dosage: 10 PERCENT OF HIS BODY SURFACE AREA
     Route: 061
     Dates: start: 201611, end: 201701
  5. TARGRETIN [Suspect]
     Active Substance: BEXAROTENE
     Dosage: 40 PERCENT OF HIS BODY SURFACE AREA
     Route: 061
     Dates: start: 201701, end: 201704

REACTIONS (3)
  - Lipids increased [Recovered/Resolved]
  - Hypothyroidism [Recovered/Resolved]
  - Idiopathic intracranial hypertension [Not Recovered/Not Resolved]

NARRATIVE: CASE EVENT DATE: 2015
